FAERS Safety Report 6038550-7 (Version None)
Quarter: 2009Q1

REPORT INFORMATION
  Report Type: 
  Country: None (occurrence: None)
  Receive Date: 20090115
  Receipt Date: 20080118
  Transmission Date: 20090719
  Serious: No
  Sender: FDA-Public Use
  Company Number: US-KINGPHARMUSA00001-K200800076

PATIENT
  Age: 22 Year
  Sex: Female

DRUGS (2)
  1. EPIPEN JR. [Suspect]
     Dosage: UNK
     Dates: start: 20080118, end: 20080118
  2. PROPYL-THIOURACIL [Concomitant]
     Indication: HYPERTHYROIDISM
     Dosage: UNK, QD

REACTIONS (4)
  - ACCIDENTAL EXPOSURE [None]
  - DYSPNOEA [None]
  - INJECTION SITE PAIN [None]
  - TACHYCARDIA [None]
